FAERS Safety Report 19351198 (Version 4)
Quarter: 2021Q3

REPORT INFORMATION
  Report Type: Spontaneous
  Country: US (occurrence: US)
  Receive Date: 20210531
  Receipt Date: 20210811
  Transmission Date: 20211014
  Serious: No
  Sender: FDA-Public Use
  Company Number: US-GLAXOSMITHKLINE-US2021115701

PATIENT
  Age: 55 Year
  Sex: Female
  Weight: 97.4 kg

DRUGS (3)
  1. ZEJULA [Suspect]
     Active Substance: NIRAPARIB
     Dosage: 200 MG, QD
     Route: 048
  2. ZEJULA [Suspect]
     Active Substance: NIRAPARIB
     Dosage: 200 MG, QD
     Dates: end: 20210727
  3. ZEJULA [Suspect]
     Active Substance: NIRAPARIB
     Indication: OVARIAN CANCER
     Dosage: 200 MG, QD (QPM)
     Route: 048
     Dates: start: 20210517

REACTIONS (6)
  - Asthenia [Unknown]
  - Tachycardia [Unknown]
  - Nausea [Recovering/Resolving]
  - Blood creatinine increased [Unknown]
  - Insomnia [Unknown]
  - Anaemia [Unknown]

NARRATIVE: CASE EVENT DATE: 202105
